FAERS Safety Report 13095937 (Version 2)
Quarter: 2017Q1

REPORT INFORMATION
  Report Type: Spontaneous
  Country: NZ (occurrence: NZ)
  Receive Date: 20170109
  Receipt Date: 20170314
  Transmission Date: 20170428
  Serious: Yes (Hospitalization, Other)
  Sender: FDA-Public Use
  Company Number: NZ-ALEMBIC PHARMACUETICALS LIMITED-2016SCAL001039

PATIENT

DRUGS (4)
  1. LOSARTAN POTASSIUM. [Suspect]
     Active Substance: LOSARTAN POTASSIUM
     Indication: PRODUCT USED FOR UNKNOWN INDICATION
     Dosage: (2,700 G) 27 TIMES MAXIMUM DAILY DOSE
     Route: 048
  2. ATORVASTATIN [Concomitant]
     Active Substance: ATORVASTATIN
     Indication: PRODUCT USED FOR UNKNOWN INDICATION
     Dosage: UNK
  3. THYROXINE [Concomitant]
     Active Substance: LEVOTHYROXINE
     Indication: PRODUCT USED FOR UNKNOWN INDICATION
     Dosage: UNK
  4. AMLODIPINE [Suspect]
     Active Substance: AMLODIPINE BESYLATE
     Indication: PRODUCT USED FOR UNKNOWN INDICATION
     Dosage: 200 MG (20 TIMES DAILY DOSE)

REACTIONS (8)
  - Respiratory failure [Unknown]
  - Electrocardiogram ST segment depression [None]
  - Vomiting [Unknown]
  - Metabolic acidosis [Unknown]
  - Acute kidney injury [Recovered/Resolved]
  - Hypotension [Unknown]
  - Intentional overdose [Unknown]
  - Fluid overload [None]
